FAERS Safety Report 4471954-2 (Version None)
Quarter: 2004Q4

REPORT INFORMATION
  Report Type: 
  Country: None (occurrence: None)
  Receive Date: 20041007
  Receipt Date: 20041001
  Transmission Date: 20050328
  Serious: Yes (Hospitalization)
  Sender: FDA-Public Use
  Company Number: 040917-0000418

PATIENT
  Age: 1 Day
  Sex: Male

DRUGS (1)
  1. TRANXENE [Suspect]
     Indication: MATERNAL DRUGS AFFECTING FOETUS
     Dosage: 1X/ TRPL
     Route: 064

REACTIONS (7)
  - APGAR SCORE LOW [None]
  - DRUG EXPOSURE DURING PREGNANCY [None]
  - DRUG LEVEL INCREASED [None]
  - FOETAL DISORDER [None]
  - FOETAL HEART RATE DECREASED [None]
  - NEONATAL RESPIRATORY ARREST [None]
  - SEDATION [None]
